FAERS Safety Report 7635907-5 (Version None)
Quarter: 2011Q3

REPORT INFORMATION
  Report Type: 
  Country: None (occurrence: None)
  Receive Date: 20110726
  Receipt Date: 20110713
  Transmission Date: 20111222
  Serious: Yes (Hospitalization)
  Sender: FDA-Public Use
  Company Number: SE-ELI_LILLY_AND_COMPANY-SE201107004354

PATIENT
  Age: 36 Year
  Sex: Female

DRUGS (4)
  1. ZYPREXA [Suspect]
     Dosage: 7.5 MG, UNK
     Dates: start: 20110705
  2. ZYPREXA [Suspect]
     Dosage: 5 MG, UNK
     Dates: start: 20100429
  3. ZYPREXA [Suspect]
     Dosage: 10 MG, UNK
     Dates: start: 20110707
  4. ZYPREXA [Suspect]
     Dosage: UNK, UNKNOWN

REACTIONS (2)
  - MANIA [None]
  - MATERNAL EXPOSURE DURING PREGNANCY [None]
